FAERS Safety Report 9261056 (Version 1)
Quarter: 2013Q2

REPORT INFORMATION
  Report Type: Spontaneous
  Country: US (occurrence: US)
  Receive Date: 20130429
  Receipt Date: 20130429
  Transmission Date: 20140414
  Serious: No
  Sender: FDA-Public Use
  Company Number: US-AMGEN-USASP2012073546

PATIENT
  Age: 65 Year
  Sex: Male

DRUGS (3)
  1. SENSIPAR [Suspect]
     Indication: HYPERPARATHYROIDISM SECONDARY
     Dosage: 30 MG, QD
     Dates: start: 201209
  2. SENSIPAR [Suspect]
  3. RENVELA [Concomitant]
     Dosage: 2400 MG, QD

REACTIONS (1)
  - Blood calcium increased [Unknown]
